FAERS Safety Report 16341480 (Version 1)
Quarter: 2019Q2

REPORT INFORMATION
  Report Type: Spontaneous
  Country: US (occurrence: US)
  Receive Date: 20190521
  Receipt Date: 20190521
  Transmission Date: 20190711
  Serious: Yes (Other)
  Sender: FDA-Public Use
  Company Number: None

PATIENT
  Age: 28 Year
  Sex: Female
  Weight: 74.84 kg

DRUGS (5)
  1. LORATADINE. [Concomitant]
     Active Substance: LORATADINE
  2. ALBUTEROL. [Concomitant]
     Active Substance: ALBUTEROL
  3. NEXPLANON [Concomitant]
     Active Substance: ETONOGESTREL
  4. MOTRIN [Concomitant]
     Active Substance: IBUPROFEN
  5. NEXPLANON [Suspect]
     Active Substance: ETONOGESTREL

REACTIONS (1)
  - Complication of device removal [None]
